FAERS Safety Report 14691468 (Version 4)
Quarter: 2020Q1

REPORT INFORMATION
  Report Type: Report from Study
  Country: NL (occurrence: NL)
  Receive Date: 20180328
  Receipt Date: 20200131
  Transmission Date: 20200409
  Serious: Yes (Death, Hospitalization, Other)
  Sender: FDA-Public Use
  Company Number: NL-ASTRAZENECA-2018SE37639

PATIENT
  Age: 26302 Day
  Sex: Male
  Weight: 95 kg

DRUGS (1)
  1. DURVALUMAB. [Suspect]
     Active Substance: DURVALUMAB
     Route: 042

REACTIONS (5)
  - Hypersensitivity [Recovered/Resolved]
  - Death [Fatal]
  - Bronchospasm [Recovered/Resolved]
  - Toxicity to various agents [Unknown]
  - Pneumonitis [Not Recovered/Not Resolved]

NARRATIVE: CASE EVENT DATE: 20180322
